FAERS Safety Report 24732629 (Version 1)
Quarter: 2024Q4

REPORT INFORMATION
  Report Type: Spontaneous
  Country: ES (occurrence: ES)
  Receive Date: 20241213
  Receipt Date: 20241213
  Transmission Date: 20250115
  Serious: Yes (Hospitalization)
  Sender: TEVA
  Company Number: None

PATIENT
  Age: 63 Year
  Sex: Male

DRUGS (5)
  1. FENTANYL [Suspect]
     Active Substance: FENTANYL
     Indication: Sciatica
     Dosage: FENTANILO (1543A)
     Route: 062
     Dates: start: 20231003, end: 20231124
  2. OLMESARTAN MEDOXOMIL [Concomitant]
     Active Substance: OLMESARTAN MEDOXOMIL
     Indication: Essential hypertension
     Dosage: 28 TABLETS, 20.0 MG DE
     Route: 048
     Dates: start: 20230912
  3. ASPIRIN [Concomitant]
     Active Substance: ASPIRIN
     Indication: Cerebral artery embolism
     Dosage: 100.0 MG DE, EFG, 30 TABLETS (PVC-ALUMINUM)
     Route: 048
     Dates: start: 20120208
  4. EZETIMIBE\ROSUVASTATIN [Concomitant]
     Active Substance: EZETIMIBE\ROSUVASTATIN
     Indication: Type V hyperlipidaemia
     Dosage: 1.0 COMP CE, 20 MG/10 MG, 30 TABLETS
     Route: 048
     Dates: start: 20220812
  5. DIAZEPAM [Concomitant]
     Active Substance: DIAZEPAM
     Indication: Essential hypertension
     Dosage: 2.5 MG DECODE, 40 TABLETS
     Route: 048
     Dates: start: 20230803

REACTIONS (1)
  - Somnolence [Recovered/Resolved]

NARRATIVE: CASE EVENT DATE: 20231119
